FAERS Safety Report 13264263 (Version 5)
Quarter: 2017Q2

REPORT INFORMATION
  Report Type: Spontaneous
  Country: IT (occurrence: IT)
  Receive Date: 20170223
  Receipt Date: 20170418
  Transmission Date: 20170830
  Serious: Yes (Other)
  Sender: FDA-Public Use
  Company Number: IT-PFIZER INC-2017076166

PATIENT
  Age: 51 Year
  Sex: Female
  Weight: 62 kg

DRUGS (3)
  1. GEMCITABINE HYDROCHLORIDE. [Suspect]
     Active Substance: GEMCITABINE HYDROCHLORIDE
     Indication: OVARIAN CANCER METASTATIC
     Dosage: 1600 MG, CYCLIC
     Route: 042
     Dates: start: 20160229
  2. CISPLATIN. [Suspect]
     Active Substance: CISPLATIN
     Indication: OVARIAN CANCER METASTATIC
     Dosage: 80 MG, CYCLIC
     Route: 042
     Dates: start: 20160229
  3. AVASTIN [Suspect]
     Active Substance: BEVACIZUMAB
     Indication: OVARIAN CANCER METASTATIC
     Dosage: 900 MG, CYCLIC
     Route: 042
     Dates: start: 20160229

REACTIONS (2)
  - Neurotoxicity [Unknown]
  - Mastication disorder [Recovering/Resolving]

NARRATIVE: CASE EVENT DATE: 20160406
